FAERS Safety Report 5825770-7 (Version None)
Quarter: 2008Q3

REPORT INFORMATION
  Report Type: 
  Country: None (occurrence: None)
  Receive Date: 20080723
  Receipt Date: 20080714
  Transmission Date: 20090109
  Serious: Yes (Other)
  Sender: FDA-Public Use
  Company Number: JHP200800185

PATIENT
  Age: 25 Year
  Sex: Female

DRUGS (8)
  1. PITOCIN [Suspect]
     Indication: POSTPARTUM HAEMORRHAGE
     Dosage: 5 UNIT, BOLUS, IV BOLUS
     Route: 040
  2. PRENATAL VITAMINS (ASCORBIC ACID, BIOTIN, MINERALS NOS, NICOTINIC ACID [Concomitant]
  3. IRON (IRON) [Concomitant]
  4. PROMETHAZINE [Concomitant]
  5. MIDAZOLAM HCL [Concomitant]
  6. BUPIVACAINE [Concomitant]
  7. FENTANYL [Concomitant]
  8. MORPHINE SULFATE [Concomitant]

REACTIONS (3)
  - HEART RATE INCREASED [None]
  - HYPOTENSION [None]
  - POSTPARTUM HAEMORRHAGE [None]
